FAERS Safety Report 14079491 (Version 3)
Quarter: 2017Q4

REPORT INFORMATION
  Report Type: Spontaneous
  Country: RU (occurrence: RU)
  Receive Date: 20171012
  Receipt Date: 20171103
  Transmission Date: 20180321
  Serious: No
  Sender: FDA-Public Use
  Company Number: RU-PFIZER INC-2017436971

PATIENT
  Age: 67 Year
  Sex: Female

DRUGS (1)
  1. DALACIN [Suspect]
     Active Substance: CLINDAMYCIN
     Indication: PROPHYLAXIS
     Dosage: UNK UNK, DAILY AT NIGHT
     Dates: start: 201703, end: 201703

REACTIONS (7)
  - Hypersensitivity [Recovered/Resolved]
  - Product quality issue [Unknown]
  - Oedema mouth [Recovered/Resolved]
  - Alopecia [Recovered/Resolved]
  - Pharyngeal oedema [Recovered/Resolved]
  - Tongue oedema [Recovered/Resolved]
  - Asthma [Recovered/Resolved]

NARRATIVE: CASE EVENT DATE: 201703
